FAERS Safety Report 6613975-7 (Version None)
Quarter: 2010Q1

REPORT INFORMATION
  Report Type: 
  Country: None (occurrence: None)
  Receive Date: 20100225
  Receipt Date: 20090106
  Transmission Date: 20100710
  Serious: Yes (Other)
  Sender: FDA-Public Use
  Company Number: 544716

PATIENT
  Age: 31 Year
  Sex: Female
  Weight: 99.8 kg

DRUGS (5)
  1. ACCUTANE [Suspect]
     Indication: ACNE CYSTIC
     Dosage: 40 MG
     Dates: start: 19980106, end: 19990308
  2. EFFEXOR XR [Concomitant]
  3. ORTHO NOVUM (*ETHINYLESTRADIOL/*MESTRANOL/NORETHISTERONE) [Concomitant]
  4. PREDNISONE TAB [Concomitant]
  5. ZOLOFT [Concomitant]

REACTIONS (24)
  - ANXIETY [None]
  - ARTHRALGIA [None]
  - COLITIS ULCERATIVE [None]
  - CROHN'S DISEASE [None]
  - DEPRESSION [None]
  - DRY SKIN [None]
  - ECZEMA [None]
  - ERYTHEMA [None]
  - EYE DISORDER [None]
  - EYE INFECTION [None]
  - HEADACHE [None]
  - IMPAIRED HEALING [None]
  - INFLAMMATORY BOWEL DISEASE [None]
  - INTERVERTEBRAL DISC PROTRUSION [None]
  - IRRITABLE BOWEL SYNDROME [None]
  - JOINT STIFFNESS [None]
  - LARYNGITIS [None]
  - LIP DRY [None]
  - NASAL DRYNESS [None]
  - PHOTOSENSITIVITY REACTION [None]
  - PRURITUS [None]
  - RASH [None]
  - RECTAL HAEMORRHAGE [None]
  - VISION BLURRED [None]
